FAERS Safety Report 21242308 (Version 1)
Quarter: 2022Q3

REPORT INFORMATION
  Report Type: Spontaneous
  Country: PT (occurrence: PT)
  Receive Date: 20220823
  Receipt Date: 20220823
  Transmission Date: 20221027
  Serious: Yes (Other)
  Sender: FDA-Public Use
  Company Number: PT-Eisai Medical Research-EC-2022-120664

PATIENT
  Age: 16 Year
  Sex: Female

DRUGS (8)
  1. SERTRALINE [Suspect]
     Active Substance: SERTRALINE HYDROCHLORIDE
     Indication: Depression
     Dosage: 100 MILLIGRAM (100MG X 16 TABLETS )
     Route: 048
     Dates: start: 20220518, end: 20220518
  2. SERTRALINE [Suspect]
     Active Substance: SERTRALINE HYDROCHLORIDE
     Dosage: 100 MILLIGRAM, ONCE A DAY
     Route: 048
     Dates: start: 20211116, end: 20220517
  3. SERTRALINE [Suspect]
     Active Substance: SERTRALINE HYDROCHLORIDE
     Dosage: 100 MILLIGRAM, ONCE A DAY
     Route: 048
     Dates: start: 20220519
  4. FYCOMPA [Suspect]
     Active Substance: PERAMPANEL
     Indication: Product used for unknown indication
     Dosage: UNK (12 TABLETS X 12 MG EACH )
     Route: 048
     Dates: start: 20211226, end: 20220518
  5. FYCOMPA [Suspect]
     Active Substance: PERAMPANEL
     Dosage: 12 MILLIGRAM, ONCE A DAY
     Route: 048
     Dates: start: 20211226, end: 20220517
  6. FYCOMPA [Suspect]
     Active Substance: PERAMPANEL
     Dosage: 10 MILLIGRAM, ONCE A DAY
     Route: 048
     Dates: start: 202205
  7. ETHOSUXIMIDE [Concomitant]
     Active Substance: ETHOSUXIMIDE
     Indication: Epilepsy
     Dosage: UNK (500 + 750 MG (FREQUENCY UNKNOWN) )
     Route: 048
     Dates: start: 20220131
  8. RISPERIDONE [Concomitant]
     Active Substance: RISPERIDONE
     Indication: Depression
     Dosage: 0.5 MILLIGRAM, 3 TIMES A DAY
     Route: 048
     Dates: start: 20220404

REACTIONS (2)
  - Suicide attempt [Recovering/Resolving]
  - Intentional overdose [Recovering/Resolving]

NARRATIVE: CASE EVENT DATE: 20220518
